FAERS Safety Report 11387008 (Version 1)
Quarter: 2015Q3

REPORT INFORMATION
  Report Type: Spontaneous
  Country: US (occurrence: None)
  Receive Date: 20150814
  Receipt Date: 20150814
  Transmission Date: 20151125
  Serious: No
  Sender: FDA-Public Use
  Company Number: None

PATIENT
  Age: 68 Year
  Sex: Female

DRUGS (15)
  1. AMPYRA [Suspect]
     Active Substance: DALFAMPRIDINE
     Indication: MULTIPLE SCLEROSIS
     Route: 048
     Dates: start: 201006
  2. SIMVASTATIN. [Concomitant]
     Active Substance: SIMVASTATIN
  3. CETIRIZINE [Concomitant]
     Active Substance: CETIRIZINE HYDROCHLORIDE
  4. HYDROCODONE/APAP [Concomitant]
     Active Substance: ACETAMINOPHEN\HYDROCODONE BITARTRATE
  5. ETODOLAC. [Concomitant]
     Active Substance: ETODOLAC
  6. ESTRADIOL. [Concomitant]
     Active Substance: ESTRADIOL
  7. FLUTICASONE NS [Concomitant]
  8. ANASTROZOLE. [Concomitant]
     Active Substance: ANASTROZOLE
  9. HUMALOG [Concomitant]
     Active Substance: INSULIN LISPRO
  10. MODAFINIL. [Concomitant]
     Active Substance: MODAFINIL
  11. LISINOPRIL. [Concomitant]
     Active Substance: LISINOPRIL
  12. BACLOFEN. [Concomitant]
     Active Substance: BACLOFEN
  13. ASA [Concomitant]
     Active Substance: ASPIRIN
  14. HUMULIN NOS [Concomitant]
     Active Substance: INSULIN HUMAN
  15. OXYBUTYNIN [Concomitant]
     Active Substance: OXYBUTYNIN

REACTIONS (1)
  - Laboratory test abnormal [None]

NARRATIVE: CASE EVENT DATE: 20150805
